FAERS Safety Report 7672217-4 (Version None)
Quarter: 2011Q3

REPORT INFORMATION
  Report Type: 
  Country: None (occurrence: None)
  Receive Date: 20110809
  Receipt Date: 20110804
  Transmission Date: 20111222
  Serious: Yes (Hospitalization)
  Sender: FDA-Public Use
  Company Number: PHHY2009PT33788

PATIENT
  Sex: Female

DRUGS (6)
  1. VOLTAREN [Suspect]
     Indication: PAIN
     Dosage: 50 MG, UNK
     Route: 048
     Dates: start: 20090621, end: 20090628
  2. CATALIP [Interacting]
     Indication: DYSLIPIDAEMIA
     Dosage: 267 MG, DAILY
     Route: 048
     Dates: start: 20090603, end: 20090628
  3. PYRIDOSTIGMINE BROMIDE [Concomitant]
     Indication: MYASTHENIA GRAVIS
     Dosage: 240 MG, DAILY
     Route: 048
     Dates: start: 20080801
  4. PREDNISOLONE [Concomitant]
     Indication: MYASTHENIA GRAVIS
     Dosage: 30 MG, DAILY
     Route: 048
     Dates: start: 20080101
  5. PERINDOPRIL [Concomitant]
     Indication: HYPERTENSION
     Dosage: 2.5 MG, DAILY
     Route: 048
     Dates: start: 20090301
  6. OMEPRAZOLE [Concomitant]
     Indication: PROPHYLAXIS AGAINST GASTROINTESTINAL ULCER
     Dosage: 20 MG, DAILY
     Route: 048
     Dates: start: 20080801

REACTIONS (9)
  - BLOOD CHOLESTEROL INCREASED [None]
  - LOW DENSITY LIPOPROTEIN INCREASED [None]
  - CHOLURIA [None]
  - HEPATITIS TOXIC [None]
  - JAUNDICE [None]
  - DRUG INTERACTION [None]
  - DEFICIENCY OF BILE SECRETION [None]
  - PRURITUS [None]
  - BLOOD TRIGLYCERIDES INCREASED [None]
